FAERS Safety Report 14807328 (Version 1)
Quarter: 2018Q2

REPORT INFORMATION
  Report Type: Spontaneous
  Country: FR (occurrence: FR)
  Receive Date: 20180425
  Receipt Date: 20180425
  Transmission Date: 20180711
  Serious: Yes (Hospitalization, Other)
  Sender: FDA-Public Use
  Company Number: FR-GLAXOSMITHKLINE-FR2018067504

PATIENT
  Age: 88 Year
  Sex: Female
  Weight: 53 kg

DRUGS (2)
  1. KARDEGIC [Suspect]
     Active Substance: ASPIRIN DL-LYSINE
     Indication: TRANSIENT ISCHAEMIC ATTACK
     Dosage: 75 MG, QD
     Route: 048
     Dates: end: 20171130
  2. VOLTARENE EMULGEL 1% [Suspect]
     Active Substance: DICLOFENAC DIETHYLAMINE
     Indication: OSTEOARTHRITIS
     Dosage: UNK
     Route: 003

REACTIONS (2)
  - Haematemesis [Recovered/Resolved]
  - Gastric ulcer [Recovering/Resolving]

NARRATIVE: CASE EVENT DATE: 20171129
